FAERS Safety Report 16850939 (Version 1)
Quarter: 2019Q3

REPORT INFORMATION
  Report Type: Report from Study
  Country: GU (occurrence: GU)
  Receive Date: 20190925
  Receipt Date: 20190925
  Transmission Date: 20191005
  Serious: Yes (Other)
  Sender: FDA-Public Use
  Company Number: GU-JNJFOC-20190928975

PATIENT
  Age: 64 Year
  Sex: Male

DRUGS (1)
  1. IMBRUVICA [Suspect]
     Active Substance: IBRUTINIB
     Indication: LYMPHOCYTIC LEUKAEMIA
     Dosage: 420 MG, QD
     Route: 048
     Dates: start: 20190802

REACTIONS (2)
  - Diabetes mellitus [Recovering/Resolving]
  - Platelet count decreased [Unknown]
